FAERS Safety Report 8434710-6 (Version None)
Quarter: 2012Q2

REPORT INFORMATION
  Report Type: 
  Country: None (occurrence: None)
  Receive Date: 20120323
  Receipt Date: 20110831
  Transmission Date: 20120825
  Serious: Yes (Other)
  Sender: FDA-Public Use
  Company Number: 163-21880-11070588

PATIENT
  Age: 52 Year
  Sex: Male
  Weight: 78.4723 kg

DRUGS (8)
  1. REVLIMID [Suspect]
     Indication: MULTIPLE MYELOMA
     Dosage: 25 MG, DAYS 1-21 OF 28 DAY CYCLE, PO
     Route: 048
     Dates: start: 20080304, end: 20110705
  2. VELCADE [Concomitant]
  3. FLEXERIL [Concomitant]
  4. ARANESP (DARBEPOETIN ALFA) (UNKNOWN) [Concomitant]
  5. LORTAB (VICODIN) UNKNOWN) [Concomitant]
  6. NEUPOGEN [Concomitant]
  7. VALTREX (VALACICLOVIR HYDROCHLORIDE) (UNKNOWN) [Concomitant]
  8. DECADRON [Concomitant]

REACTIONS (1)
  - ANGIOEDEMA [None]
